FAERS Safety Report 17683772 (Version 2)
Quarter: 2020Q2

REPORT INFORMATION
  Report Type: Spontaneous
  Country: FI (occurrence: FI)
  Receive Date: 20200420
  Receipt Date: 20200611
  Transmission Date: 20200714
  Serious: Yes (Other)
  Sender: FDA-Public Use
  Company Number: NVSC2020FI103362

PATIENT
  Age: 62 Year
  Sex: Female

DRUGS (13)
  1. DOCETAXEL. [Suspect]
     Active Substance: DOCETAXEL
     Indication: INVASIVE DUCTAL BREAST CARCINOMA
  2. TRASTUZUMAB. [Suspect]
     Active Substance: TRASTUZUMAB
     Indication: BREAST CANCER
     Dosage: UNK (3 CYCLES)
     Route: 065
     Dates: start: 2018
  3. EPIRUBICIN [Suspect]
     Active Substance: EPIRUBICIN
     Indication: INVASIVE DUCTAL BREAST CARCINOMA
  4. FILGRASTIM [Suspect]
     Active Substance: FILGRASTIM
     Indication: BREAST CANCER
     Dosage: UNK (3 DOSES)
     Route: 065
     Dates: start: 2018
  5. 5 FLUOROURACIL [Suspect]
     Active Substance: FLUOROURACIL
     Indication: INVASIVE DUCTAL BREAST CARCINOMA
  6. CYCLOPHOSPHAMIDE. [Concomitant]
     Active Substance: CYCLOPHOSPHAMIDE
     Indication: INVASIVE DUCTAL BREAST CARCINOMA
     Dosage: UNK
     Route: 065
     Dates: start: 2018
  7. PERTUZUMAB. [Concomitant]
     Active Substance: PERTUZUMAB
     Indication: INVASIVE DUCTAL BREAST CARCINOMA
  8. DOCETAXEL. [Suspect]
     Active Substance: DOCETAXEL
     Indication: BREAST CANCER
     Dosage: UNK (3 CYCLES)
     Route: 065
     Dates: start: 2018
  9. PERTUZUMAB. [Concomitant]
     Active Substance: PERTUZUMAB
     Indication: BREAST CANCER
     Dosage: UNK (3 CYCLES)
     Route: 065
     Dates: start: 2018
  10. 5 FLUOROURACIL [Suspect]
     Active Substance: FLUOROURACIL
     Indication: BREAST CANCER
     Dosage: UNK
     Route: 065
     Dates: start: 2018
  11. EPIRUBICIN [Suspect]
     Active Substance: EPIRUBICIN
     Indication: BREAST CANCER
     Dosage: UNK
     Route: 065
     Dates: start: 2018
  12. PEGFILGRASTIM [Suspect]
     Active Substance: PEGFILGRASTIM
     Indication: BREAST CANCER
     Dosage: UNK (3 DOSES)
     Route: 065
     Dates: start: 2018
  13. TRASTUZUMAB. [Suspect]
     Active Substance: TRASTUZUMAB
     Indication: INVASIVE DUCTAL BREAST CARCINOMA

REACTIONS (4)
  - Aortitis [Unknown]
  - Product use in unapproved indication [Unknown]
  - Pyrexia [Unknown]
  - Vasculitis [Recovered/Resolved]

NARRATIVE: CASE EVENT DATE: 2018
